FAERS Safety Report 13095144 (Version 4)
Quarter: 2017Q3

REPORT INFORMATION
  Report Type: Report from Study
  Country: JP (occurrence: JP)
  Receive Date: 20170107
  Receipt Date: 20170928
  Transmission Date: 20171127
  Serious: Yes (Hospitalization)
  Sender: FDA-Public Use
  Company Number: JP-AMGEN-JPNCT2016185929

PATIENT
  Age: 84 Year
  Sex: Male

DRUGS (22)
  1. SENNOSIDE [Concomitant]
     Active Substance: SENNOSIDES
     Indication: CONSTIPATION
     Dosage: UNK
     Route: 048
  2. STARSIS [Concomitant]
     Active Substance: NATEGLINIDE
     Indication: DIABETES MELLITUS
     Dosage: UNK
     Route: 048
     Dates: end: 20160119
  3. DARBEPOETIN ALFA [Suspect]
     Active Substance: DARBEPOETIN ALFA
     Dosage: 180 MUG, Q3WK
     Route: 058
     Dates: start: 20160302, end: 20160413
  4. FEBURIC [Concomitant]
     Active Substance: FEBUXOSTAT
     Indication: HYPERURICAEMIA
     Dosage: UNK
     Route: 048
     Dates: end: 20160726
  5. TRICHLORMETHIAZIDE [Concomitant]
     Active Substance: TRICHLORMETHIAZIDE
     Indication: HYPERTENSION
     Dosage: UNK
     Route: 048
     Dates: end: 20160726
  6. ARICEPT [Concomitant]
     Active Substance: DONEPEZIL HYDROCHLORIDE
     Indication: DEMENTIA
     Dosage: UNK
     Route: 048
  7. DARBEPOETIN ALFA [Suspect]
     Active Substance: DARBEPOETIN ALFA
     Dosage: 180 MUG, Q2WK
     Route: 058
     Dates: start: 20160831, end: 20160914
  8. ROCEPHIN [Concomitant]
     Active Substance: CEFTRIAXONE SODIUM
     Indication: BRONCHITIS
     Dosage: UNK
  9. DARBEPOETIN ALFA [Suspect]
     Active Substance: DARBEPOETIN ALFA
     Dosage: 180 MUG, UNK
     Route: 058
     Dates: start: 20151216, end: 20151216
  10. DARBEPOETIN ALFA [Suspect]
     Active Substance: DARBEPOETIN ALFA
     Dosage: 180 MUG, Q4WK
     Route: 058
     Dates: start: 20160120, end: 20160217
  11. TAKELDA [Concomitant]
     Active Substance: ASPIRIN\LANSOPRAZOLE
     Indication: CEREBRAL INFARCTION
     Dosage: UNK
     Route: 048
  12. DARBEPOETIN ALFA [Suspect]
     Active Substance: DARBEPOETIN ALFA
     Indication: MYELODYSPLASTIC SYNDROME
     Dosage: 120 MUG, Q2WK
     Route: 058
     Dates: start: 20151118, end: 20151202
  13. DARBEPOETIN ALFA [Suspect]
     Active Substance: DARBEPOETIN ALFA
     Dosage: 180 MUG, Q2WK
     Route: 058
     Dates: start: 20160427, end: 20160706
  14. LANSOPRAZOLE. [Concomitant]
     Active Substance: LANSOPRAZOLE
     Indication: CHRONIC GASTRITIS
     Dosage: UNK
     Route: 048
  15. PANSPORIN T [Concomitant]
     Dosage: UNK
     Route: 048
     Dates: end: 20160731
  16. DARBEPOETIN ALFA [Suspect]
     Active Substance: DARBEPOETIN ALFA
     Dosage: 180 MUG, UNK
     Route: 058
     Dates: start: 20151228, end: 20151228
  17. FUROSEMIDE. [Concomitant]
     Active Substance: FUROSEMIDE
     Indication: HYPERTENSION
     Dosage: UNK
     Route: 048
     Dates: end: 20151201
  18. SM [Concomitant]
     Indication: CHRONIC GASTRITIS
     Dosage: UNK
     Route: 048
  19. JANUVIA [Concomitant]
     Active Substance: SITAGLIPTIN PHOSPHATE
     Indication: DIABETES MELLITUS
     Dosage: UNK
     Route: 048
  20. BAYASPIRIN [Concomitant]
     Active Substance: ASPIRIN
     Indication: CEREBRAL INFARCTION
     Dosage: UNK
     Route: 048
     Dates: end: 20151201
  21. FOLIAMIN [Concomitant]
     Active Substance: FOLIC ACID
     Indication: VITAMIN B COMPLEX DEFICIENCY
     Dosage: UNK
     Route: 048
     Dates: end: 20160119
  22. DARBEPOETIN ALFA [Suspect]
     Active Substance: DARBEPOETIN ALFA
     Dosage: 180 MUG, Q3WK
     Route: 058
     Dates: start: 20160727, end: 20160817

REACTIONS (3)
  - Pneumonia aspiration [Unknown]
  - Bronchitis [Recovering/Resolving]
  - Urinary tract infection [Recovering/Resolving]

NARRATIVE: CASE EVENT DATE: 20160125
